FAERS Safety Report 8574453-1 (Version None)
Quarter: 2012Q3

REPORT INFORMATION
  Report Type: 
  Country: None (occurrence: None)
  Receive Date: 20120806
  Receipt Date: 20111110
  Transmission Date: 20120928
  Serious: No
  Sender: FDA-Public Use
  Company Number: US-ABBOTT-11P-163-0873541-00

PATIENT
  Sex: Male
  Weight: 95.34 kg

DRUGS (3)
  1. DEPAKOTE ER [Suspect]
     Indication: EPILEPSY
  2. DEPAKOTE ER [Suspect]
     Indication: EPILEPSY
  3. DEPAKOTE [Suspect]
     Indication: EPILEPSY
     Dosage: 1 TABLET IN AM AND 2 TABLEST IN PM

REACTIONS (6)
  - ERUCTATION [None]
  - GASTROINTESTINAL HYPERMOTILITY [None]
  - ABDOMINAL PAIN LOWER [None]
  - FLATULENCE [None]
  - GASTROINTESTINAL SOUNDS ABNORMAL [None]
  - DIARRHOEA [None]
